FAERS Safety Report 17880432 (Version 1)
Quarter: 2020Q2

REPORT INFORMATION
  Report Type: Spontaneous
  Country: IT (occurrence: IT)
  Receive Date: 20200610
  Receipt Date: 20200610
  Transmission Date: 20200714
  Serious: Yes (Hospitalization)
  Sender: FDA-Public Use
  Company Number: IT-ASTRAZENECA-2020SE71958

PATIENT
  Age: 72 Year
  Sex: Male

DRUGS (5)
  1. LIXIANA [Concomitant]
     Active Substance: EDOXABAN TOSYLATE
     Dosage: 60.0MG UNKNOWN
  2. MADOPAR [Suspect]
     Active Substance: BENSERAZIDE HYDROCHLORIDE\LEVODOPA
     Indication: BIPOLAR DISORDER
     Dosage: 100+25 MG, 3 DF DAILY
     Route: 065
     Dates: start: 20200201, end: 20200507
  3. DEPAKIN [Interacting]
     Active Substance: VALPROATE SODIUM
     Indication: BIPOLAR DISORDER
     Route: 065
     Dates: start: 20200506, end: 20200507
  4. SEROQUEL [Suspect]
     Active Substance: QUETIAPINE FUMARATE
     Indication: BIPOLAR DISORDER
     Route: 048
     Dates: start: 20200101, end: 20200507
  5. LASIX [Concomitant]
     Active Substance: FUROSEMIDE
     Dosage: 75.0MG UNKNOWN

REACTIONS (4)
  - Renal failure [Unknown]
  - Psychomotor hyperactivity [Unknown]
  - Drug interaction [Unknown]
  - Hyperammonaemia [Unknown]

NARRATIVE: CASE EVENT DATE: 20200507
